FAERS Safety Report 12807214 (Version 1)
Quarter: 2016Q4

REPORT INFORMATION
  Report Type: Spontaneous
  Country: US (occurrence: US)
  Receive Date: 20161003
  Receipt Date: 20161003
  Transmission Date: 20170207
  Serious: Yes (Other)
  Sender: FDA-Public Use
  Company Number: None

PATIENT
  Age: 42 Year
  Sex: Male
  Weight: 87.75 kg

DRUGS (4)
  1. STOOL SOFTENER (DOCUSATE CALCIUM) [Concomitant]
     Active Substance: DOCUSATE CALCIUM
  2. OXTELLAR XR [Suspect]
     Active Substance: OXCARBAZEPINE
     Indication: EPILEPSY
     Dosage: ?          QUANTITY:3 TABLET(S);?
     Route: 048
     Dates: start: 20160217
  3. LEVOXYL [Concomitant]
     Active Substance: LEVOTHYROXINE SODIUM
  4. LAMICTAL [Concomitant]
     Active Substance: LAMOTRIGINE

REACTIONS (3)
  - Tinnitus [None]
  - Muscle fatigue [None]
  - Seizure [None]

NARRATIVE: CASE EVENT DATE: 20160921
